FAERS Safety Report 8015242-6 (Version None)
Quarter: 2011Q4

REPORT INFORMATION
  Report Type: 
  Country: None (occurrence: None)
  Receive Date: 20111230
  Receipt Date: 20111222
  Transmission Date: 20120403
  Serious: Yes (Hospitalization)
  Sender: FDA-Public Use
  Company Number: US-BIOGENIDEC-2011BI037075

PATIENT
  Age: 45 Year
  Sex: Female

DRUGS (2)
  1. AVONEX [Suspect]
     Route: 030
  2. AVONEX [Suspect]
     Indication: MULTIPLE SCLEROSIS
     Route: 030
     Dates: start: 20110527

REACTIONS (7)
  - PERIPHERAL SENSORY NEUROPATHY [None]
  - URTICARIA [None]
  - GINGIVITIS [None]
  - DIZZINESS [None]
  - MULTIPLE SCLEROSIS [None]
  - HYPERSENSITIVITY [None]
  - BACK PAIN [None]
